FAERS Safety Report 5324272-4 (Version None)
Quarter: 2007Q2

REPORT INFORMATION
  Report Type: 
  Country: None (occurrence: None)
  Receive Date: 20070514
  Receipt Date: 20070430
  Transmission Date: 20071010
  Serious: Yes (Death, Other)
  Sender: FDA-Public Use
  Company Number: DE-SHR-DE-2007-014313

PATIENT
  Age: 75 Year
  Sex: Male

DRUGS (2)
  1. ULTRAVIST 300 [Suspect]
     Dosage: 100 ML, 1 DOSE
     Route: 042
  2. PANTOZOL [Concomitant]

REACTIONS (5)
  - CARDIAC ARREST [None]
  - DEPRESSED LEVEL OF CONSCIOUSNESS [None]
  - DYSPNOEA [None]
  - FEELING ABNORMAL [None]
  - PULMONARY EMBOLISM [None]
